FAERS Safety Report 21503538 (Version 1)
Quarter: 2022Q4

REPORT INFORMATION
  Report Type: Spontaneous
  Country: US (occurrence: US)
  Receive Date: 20221025
  Receipt Date: 20221025
  Transmission Date: 20230113
  Serious: Yes (Other)
  Sender: FDA-Public Use
  Company Number: US-PERRIGO-22US013940

PATIENT

DRUGS (3)
  1. RANITIDINE HYDROCHLORIDE [Suspect]
     Active Substance: RANITIDINE HYDROCHLORIDE
     Indication: Product used for unknown indication
     Dosage: OVER THE COUNTER
     Route: 048
     Dates: start: 2005, end: 2010
  2. ZANTAC [Suspect]
     Active Substance: RANITIDINE HYDROCHLORIDE
     Indication: Product used for unknown indication
     Dosage: UNSPECIFIED PRESCRIPTION
     Route: 065
     Dates: start: 2005, end: 2010
  3. ZANTAC [Suspect]
     Active Substance: RANITIDINE HYDROCHLORIDE
     Dosage: OVER THE COUNTER
     Route: 065
     Dates: start: 2005, end: 2010

REACTIONS (1)
  - Breast cancer [Unknown]
